FAERS Safety Report 5344287-X (Version None)
Quarter: 2007Q2

REPORT INFORMATION
  Report Type: 
  Country: None (occurrence: None)
  Receive Date: 20070604
  Receipt Date: 20070524
  Transmission Date: 20071010
  Serious: Yes (Other)
  Sender: FDA-Public Use
  Company Number: US-ELI_LILLY_AND_COMPANY-US200705006344

PATIENT
  Age: 36 Year
  Sex: Female

DRUGS (2)
  1. CYMBALTA [Suspect]
     Indication: NEURALGIA
     Dosage: 30 MG, DAILY (1/D)
     Route: 048
     Dates: start: 20070401, end: 20070508
  2. CYMBALTA [Suspect]
     Dosage: 90 MG, DAILY (1/D)
     Route: 048
     Dates: start: 20070509, end: 20070522

REACTIONS (6)
  - ARTHRALGIA [None]
  - FLUID RETENTION [None]
  - GAIT DISTURBANCE [None]
  - JOINT SWELLING [None]
  - MOBILITY DECREASED [None]
  - PAIN [None]
